FAERS Safety Report 16412746 (Version 1)
Quarter: 2019Q2

REPORT INFORMATION
  Report Type: Report from Study
  Country: None (occurrence: AU)
  Receive Date: 20190611
  Receipt Date: 20190611
  Transmission Date: 20190711
  Serious: Yes (Hospitalization)
  Sender: FDA-Public Use
  Company Number: AU-ABBVIE-19K-008-2809527-00

PATIENT
  Sex: Female

DRUGS (1)
  1. HUMIRA [Suspect]
     Active Substance: ADALIMUMAB
     Indication: RHEUMATOID ARTHRITIS
     Route: 058

REACTIONS (10)
  - Urinary tract infection [Not Recovered/Not Resolved]
  - Eructation [Unknown]
  - Injection site pain [Unknown]
  - Surgery [Unknown]
  - Gastrooesophageal reflux disease [Unknown]
  - Herpes zoster [Recovered/Resolved]
  - Nausea [Unknown]
  - Polyp [Unknown]
  - Vertigo [Unknown]
  - Haemorrhage [Unknown]

NARRATIVE: CASE EVENT DATE: 2019
